FAERS Safety Report 17082845 (Version 1)
Quarter: 2019Q4

REPORT INFORMATION
  Report Type: Spontaneous
  Country: AT (occurrence: AT)
  Receive Date: 20191127
  Receipt Date: 20191127
  Transmission Date: 20200122
  Serious: Yes (Other)
  Sender: FDA-Public Use
  Company Number: NVSC2019AT044637

PATIENT
  Age: 59 Year
  Sex: Female
  Weight: 59 kg

DRUGS (4)
  1. TECENTRIQ [Suspect]
     Active Substance: ATEZOLIZUMAB
     Indication: NON-SMALL CELL LUNG CANCER METASTATIC
     Dosage: 1200 MG, 21D
     Route: 065
     Dates: start: 20190304, end: 201904
  2. AVASTIN [Suspect]
     Active Substance: BEVACIZUMAB
     Indication: NON-SMALL CELL LUNG CANCER METASTATIC
     Dosage: 15 MG/KG, 21D
     Route: 065
     Dates: start: 20190304, end: 201904
  3. CARBOPLATIN. [Suspect]
     Active Substance: CARBOPLATIN
     Indication: NON-SMALL CELL LUNG CANCER METASTATIC
     Dosage: 1 OT, 21D (AUC 6)
     Route: 065
     Dates: start: 20190304, end: 201904
  4. PACLITAXEL. [Suspect]
     Active Substance: PACLITAXEL
     Indication: NON-SMALL CELL LUNG CANCER METASTATIC
     Dosage: 200 MG/M2, 21D
     Route: 065
     Dates: start: 20190304, end: 201904

REACTIONS (2)
  - Immune-mediated hepatitis [Recovering/Resolving]
  - Pathological fracture [Unknown]

NARRATIVE: CASE EVENT DATE: 201904
